FAERS Safety Report 7323409-5 (Version None)
Quarter: 2011Q1

REPORT INFORMATION
  Report Type: 
  Country: None (occurrence: None)
  Receive Date: 20110301
  Receipt Date: 20110223
  Transmission Date: 20110831
  Serious: Yes (Hospitalization)
  Sender: FDA-Public Use
  Company Number: IT-PFIZER INC-2011040404

PATIENT
  Age: 49 Year
  Sex: Male

DRUGS (2)
  1. SPIDIFEN [Suspect]
     Indication: RESPIRATORY TRACT INFECTION
     Dosage: 600 MG, 1X/DAY
     Route: 048
     Dates: start: 20110210, end: 20110210
  2. ZITHROMAX [Suspect]
     Indication: RESPIRATORY TRACT INFECTION
     Dosage: 500 MG, 1X/DAY
     Route: 048
     Dates: start: 20110210, end: 20110210

REACTIONS (2)
  - DYSPNOEA [None]
  - RASH [None]
